FAERS Safety Report 5035885-1 (Version None)
Quarter: 2006Q2

REPORT INFORMATION
  Report Type: 
  Country: None (occurrence: None)
  Receive Date: 20060526
  Receipt Date: 20060412
  Transmission Date: 20061013
  Serious: Yes (Hospitalization)
  Sender: FDA-Public Use
  Company Number: 223371

PATIENT
  Age: 23 Year
  Sex: Female
  Weight: 54.9 kg

DRUGS (7)
  1. RAPTIVA [Suspect]
     Indication: PSORIASIS
     Dates: start: 20060101, end: 20060314
  2. BENADRYL [Concomitant]
  3. DERMA-SMOOTHE/FS (FLUOCINOLONE ACETONIDE) [Concomitant]
  4. TRIAMCINOLONE ACETONIDE OINTMENT (TRIAMCINOLONE ACETONIDE) [Concomitant]
  5. LOCOID LIPOCREAM (HYDROCORTISONE BUTYRATE) [Concomitant]
  6. OMNICEF [Concomitant]
  7. ATARAX [Concomitant]

REACTIONS (2)
  - BACK PAIN [None]
  - PSORIASIS [None]
